FAERS Safety Report 10276520 (Version 3)
Quarter: 2014Q3

REPORT INFORMATION
  Report Type: Spontaneous
  Country: US (occurrence: US)
  Receive Date: 20140703
  Receipt Date: 20140908
  Transmission Date: 20150326
  Serious: Yes (Congenital Anomaly)
  Sender: FDA-Public Use
  Company Number: US-PURDUE-USA-2014-0115266

PATIENT
  Sex: Male

DRUGS (1)
  1. DILAUDID [Suspect]
     Active Substance: HYDROMORPHONE HYDROCHLORIDE
     Indication: PRODUCT USED FOR UNKNOWN INDICATION
     Route: 064

REACTIONS (16)
  - Lacrimation increased [Unknown]
  - Dyspnoea [Unknown]
  - Nervousness [Unknown]
  - Agitation [Unknown]
  - Pain [None]
  - Diarrhoea [Unknown]
  - Tremor [Unknown]
  - Laryngeal disorder [Unknown]
  - Crying [Unknown]
  - Dyspnoea [None]
  - Supernumerary nipple [Unknown]
  - Laryngomalacia [Unknown]
  - Foetal exposure during pregnancy [Unknown]
  - Cough [Unknown]
  - Eye swelling [Unknown]
  - Vomiting [Unknown]
